FAERS Safety Report 12216520 (Version 1)
Quarter: 2016Q1

REPORT INFORMATION
  Report Type: Spontaneous
  Country: US (occurrence: US)
  Receive Date: 20160329
  Receipt Date: 20160329
  Transmission Date: 20160526
  Serious: No
  Sender: FDA-Public Use
  Company Number: US-TEVA-634876USA

PATIENT
  Sex: Female

DRUGS (1)
  1. MINOCYCLINE [Suspect]
     Active Substance: MINOCYCLINE\MINOCYCLINE HYDROCHLORIDE
     Indication: INFECTION
     Route: 065
     Dates: start: 20160210, end: 20160210

REACTIONS (11)
  - Nausea [Recovering/Resolving]
  - Paraesthesia [Recovering/Resolving]
  - Pruritus [Recovering/Resolving]
  - Ocular hyperaemia [Recovering/Resolving]
  - Dizziness [Recovering/Resolving]
  - Myalgia [Recovering/Resolving]
  - Eye pruritus [Recovering/Resolving]
  - Feeling abnormal [Recovering/Resolving]
  - Oropharyngeal pain [Recovering/Resolving]
  - Abdominal pain upper [Recovering/Resolving]
  - Diarrhoea [Recovering/Resolving]

NARRATIVE: CASE EVENT DATE: 20160210
